FAERS Safety Report 12157173 (Version 1)
Quarter: 2016Q1

REPORT INFORMATION
  Report Type: Spontaneous
  Country: KR (occurrence: KR)
  Receive Date: 20160308
  Receipt Date: 20160308
  Transmission Date: 20160526
  Serious: Yes (Death)
  Sender: FDA-Public Use
  Company Number: KR-ROCHE-1544269

PATIENT
  Age: 48 Year
  Sex: Male

DRUGS (6)
  1. CARBOPLATIN. [Concomitant]
     Active Substance: CARBOPLATIN
     Route: 065
     Dates: start: 201208
  2. AVASTIN [Suspect]
     Active Substance: BEVACIZUMAB
     Indication: ANAPLASTIC ASTROCYTOMA
  3. IRINOTECAN [Suspect]
     Active Substance: IRINOTECAN
     Indication: ANAPLASTIC ASTROCYTOMA
     Route: 065
     Dates: start: 201108
  4. AVASTIN [Suspect]
     Active Substance: BEVACIZUMAB
     Indication: GLIOBLASTOMA
     Dosage: TOTAL 18 CYCLES
     Route: 042
     Dates: start: 201108
  5. ETOPOSIDE. [Concomitant]
     Active Substance: ETOPOSIDE
     Route: 065
     Dates: start: 201208
  6. IFOSFAMIDE. [Concomitant]
     Active Substance: IFOSFAMIDE
     Route: 065
     Dates: start: 201208

REACTIONS (5)
  - Seizure [Unknown]
  - Muscular weakness [Unknown]
  - Epistaxis [Unknown]
  - Disease progression [Fatal]
  - Flat affect [Unknown]
